FAERS Safety Report 9054860 (Version 1)
Quarter: 2013Q1

REPORT INFORMATION
  Report Type: Spontaneous
  Country: DE (occurrence: DE)
  Receive Date: 20130208
  Receipt Date: 20130208
  Transmission Date: 20140127
  Serious: Yes (Other)
  Sender: FDA-Public Use
  Company Number: DE-SANOFI-AVENTIS-2013SA011284

PATIENT
  Sex: Female

DRUGS (2)
  1. ARAVA [Suspect]
     Indication: PRODUCT USED FOR UNKNOWN INDICATION
     Dosage: OVERALL INTAKE OF 3 TABLETS
     Route: 048
  2. ALL OTHER THERAPEUTIC PRODUCTS [Concomitant]
     Indication: UTERINE HAEMORRHAGE

REACTIONS (2)
  - Uterine haemorrhage [Unknown]
  - Adverse reaction [Unknown]
